FAERS Safety Report 11544381 (Version 3)
Quarter: 2015Q4

REPORT INFORMATION
  Report Type: Spontaneous
  Country: US (occurrence: US)
  Receive Date: 20150924
  Receipt Date: 20151028
  Transmission Date: 20160304
  Serious: No
  Sender: FDA-Public Use
  Company Number: US-PFIZER INC-2015309455

PATIENT
  Sex: Female

DRUGS (2)
  1. BACITRACIN. [Suspect]
     Active Substance: BACITRACIN
     Indication: CELLULITIS
     Dosage: UNK
     Route: 061
  2. MICONAZOLE. [Suspect]
     Active Substance: MICONAZOLE
     Dosage: UNK

REACTIONS (2)
  - Drug hypersensitivity [Unknown]
  - Rash [Recovered/Resolved]
